FAERS Safety Report 10879729 (Version 1)
Quarter: 2015Q1

REPORT INFORMATION
  Report Type: Spontaneous
  Country: CA (occurrence: CA)
  Receive Date: 20150302
  Receipt Date: 20150302
  Transmission Date: 20150721
  Serious: Yes (Other)
  Sender: FDA-Public Use
  Company Number: CA-TEVA-543484USA

PATIENT
  Age: 17 Year
  Sex: Female
  Weight: 57.2 kg

DRUGS (1)
  1. PLAN B [Suspect]
     Active Substance: LEVONORGESTREL
     Indication: POST COITAL CONTRACEPTION
     Dosage: TOOK TWO TABS TOGETHER
     Dates: start: 20150218, end: 20150218

REACTIONS (1)
  - Haemorrhage [Unknown]
